FAERS Safety Report 21243494 (Version 1)
Quarter: 2022Q3

REPORT INFORMATION
  Report Type: Spontaneous
  Country: CA (occurrence: CA)
  Receive Date: 20220823
  Receipt Date: 20220823
  Transmission Date: 20221027
  Serious: Yes (Other)
  Sender: FDA-Public Use
  Company Number: None

PATIENT
  Age: 56 Year
  Sex: Male
  Weight: 75 kg

DRUGS (7)
  1. PACLITAXEL [Suspect]
     Active Substance: PACLITAXEL
     Indication: Oesophageal carcinoma
     Dosage: 1 EVERY 7 DAYS
     Route: 042
  2. BENADRYL [Concomitant]
     Active Substance: DIPHENHYDRAMINE HYDROCHLORIDE
  3. CARBOPLATIN [Concomitant]
     Active Substance: CARBOPLATIN
     Indication: Oesophageal carcinoma
     Dosage: SOLUTION IV
  4. DEXAMETHASONE [Concomitant]
     Active Substance: DEXAMETHASONE
     Route: 014
  5. UMECLIDINIUM [Concomitant]
     Active Substance: UMECLIDINIUM
     Dosage: POWDER FOR ORAL INHALATION
     Route: 048
  6. PANTOPRAZOLE [Concomitant]
     Active Substance: PANTOPRAZOLE
     Dosage: POWDER FOR SOLUTION IV
     Route: 042
  7. RANITIDINE [Concomitant]
     Active Substance: RANITIDINE

REACTIONS (2)
  - Pyrexia [Recovered/Resolved]
  - Rash morbilliform [Recovered/Resolved]
